FAERS Safety Report 19362407 (Version 1)
Quarter: 2021Q2

REPORT INFORMATION
  Report Type: Spontaneous
  Country: KR (occurrence: KR)
  Receive Date: 20210603
  Receipt Date: 20210603
  Transmission Date: 20210717
  Serious: Yes (Death, Other)
  Sender: FDA-Public Use
  Company Number: KR-ROCHE-2840375

PATIENT
  Age: 68 Year
  Sex: Male

DRUGS (8)
  1. EPIRUBICIN [Concomitant]
     Active Substance: EPIRUBICIN
     Indication: SMALL CELL LUNG CANCER
     Dates: start: 20191115, end: 20200126
  2. TECENTRIQ [Suspect]
     Active Substance: ATEZOLIZUMAB
     Indication: SMALL CELL LUNG CANCER
     Route: 041
     Dates: start: 20191115, end: 20191117
  3. PERIDOL [Concomitant]
     Active Substance: HALOPERIDOL
  4. PERIDOL [Concomitant]
     Active Substance: HALOPERIDOL
  5. PERIDOL [Concomitant]
     Active Substance: HALOPERIDOL
  6. IRINOTECAN [Concomitant]
     Active Substance: IRINOTECAN
     Dates: start: 20200603, end: 20200609
  7. CYCLOPHOSPHAMIDE. [Concomitant]
     Active Substance: CYCLOPHOSPHAMIDE
     Indication: SMALL CELL LUNG CANCER
     Dates: start: 20191115, end: 20200126
  8. PERIDOL [Concomitant]
     Active Substance: HALOPERIDOL

REACTIONS (6)
  - Acarodermatitis [Unknown]
  - Eosinophilic granulomatosis with polyangiitis [Unknown]
  - Death [Fatal]
  - Liver function test increased [Unknown]
  - Influenza [Unknown]
  - Febrile neutropenia [Unknown]
